FAERS Safety Report 9374359 (Version 4)
Quarter: 2013Q3

REPORT INFORMATION
  Report Type: Spontaneous
  Country: US (occurrence: US)
  Receive Date: 20130628
  Receipt Date: 20130802
  Transmission Date: 20140515
  Serious: Yes (Hospitalization)
  Sender: FDA-Public Use
  Company Number: PHEH2013US013710

PATIENT
  Age: 60 Year
  Sex: Male

DRUGS (1)
  1. DIOVAN HCT [Suspect]
     Dosage: UNK (320/25MG), DAILY
     Route: 048
     Dates: start: 200804

REACTIONS (10)
  - Appendicitis perforated [Unknown]
  - Renal failure acute [Recovered/Resolved]
  - Blood creatine increased [Unknown]
  - Blood urea increased [Unknown]
  - Urine output decreased [Unknown]
  - Oedema [Unknown]
  - Local swelling [Unknown]
  - Hypertension [Unknown]
  - Haematemesis [Unknown]
  - Malaise [Unknown]
